FAERS Safety Report 8340725-9 (Version None)
Quarter: 2012Q2

REPORT INFORMATION
  Report Type: 
  Country: None (occurrence: None)
  Receive Date: 20120507
  Receipt Date: 20120424
  Transmission Date: 20120825
  Serious: Yes (Other)
  Sender: FDA-Public Use
  Company Number: MX-BIOGENIDEC-2012BI015089

PATIENT
  Sex: Female

DRUGS (1)
  1. TYSABRI [Suspect]
     Indication: MULTIPLE SCLEROSIS
     Dates: start: 20110101

REACTIONS (3)
  - HEPATIC FIBROSIS [None]
  - CHOLELITHIASIS [None]
  - CHOLECYSTITIS [None]
